FAERS Safety Report 20475660 (Version 1)
Quarter: 2022Q1

REPORT INFORMATION
  Report Type: Spontaneous
  Country: US (occurrence: US)
  Receive Date: 20220215
  Receipt Date: 20220215
  Transmission Date: 20220423
  Serious: No
  Sender: FDA-Public Use
  Company Number: US-PFIZER INC-202101241117

PATIENT
  Age: 55 Year
  Sex: Female

DRUGS (1)
  1. SOMAVERT [Suspect]
     Active Substance: PEGVISOMANT
     Dosage: 25 MG
     Dates: start: 20200822, end: 20210917

REACTIONS (2)
  - Malaise [Unknown]
  - Product dose omission issue [Unknown]
